FAERS Safety Report 5844956-9 (Version None)
Quarter: 2008Q3

REPORT INFORMATION
  Report Type: 
  Country: None (occurrence: None)
  Receive Date: 20080813
  Receipt Date: 20080813
  Transmission Date: 20090109
  Serious: No
  Sender: FDA-Public Use
  Company Number: None

PATIENT
  Age: 62 Year
  Sex: Male

DRUGS (1)
  1. WARFARIN SODIUM [Suspect]
     Dosage: 7.5 MG EVERY DAY PO
     Route: 048
     Dates: start: 20080731, end: 20080808

REACTIONS (3)
  - HAEMORRHAGE [None]
  - PERIRENAL HAEMATOMA [None]
  - RETROPERITONEAL HAEMATOMA [None]
